FAERS Safety Report 8874467 (Version 1)
Quarter: 2012Q4

REPORT INFORMATION
  Report Type: 
  Country: IT (occurrence: IT)
  Receive Date: 20121023
  Receipt Date: 20121023
  Transmission Date: 20130627
  Serious: Yes (Hospitalization)
  Sender: FDA-Public Use
  Company Number: IT-BAYER-2012-104928

PATIENT
  Age: 73 Year
  Sex: Female

DRUGS (4)
  1. CARDIOASPIRIN [Suspect]
     Dosage: 100 mg, QD
     Route: 048
     Dates: start: 20090201, end: 20120923
  2. RAMIPRIL [Concomitant]
     Dosage: Daily dose 5 mg
     Route: 048
  3. EUTIROX [Concomitant]
     Dosage: Daily dose 100 ?g
     Route: 048
  4. PLETAL [Concomitant]
     Dosage: Daily dose 200 mg
     Route: 048

REACTIONS (6)
  - Vomiting [Recovering/Resolving]
  - Abdominal pain [Recovering/Resolving]
  - Abdominal pain [Recovering/Resolving]
  - Intestinal perforation [Recovering/Resolving]
  - Peritonitis [Recovering/Resolving]
  - Acute abdomen [Recovering/Resolving]
